FAERS Safety Report 24583629 (Version 1)
Quarter: 2024Q4

REPORT INFORMATION
  Report Type: Spontaneous
  Country: AU (occurrence: AU)
  Receive Date: 20241106
  Receipt Date: 20241106
  Transmission Date: 20250115
  Serious: Yes (Hospitalization)
  Sender: STRIDES
  Company Number: AU-STRIDES ARCOLAB LIMITED-2024SP014214

PATIENT
  Age: 31 Year
  Sex: Male

DRUGS (8)
  1. ETOPOSIDE [Suspect]
     Active Substance: ETOPOSIDE
     Indication: Testicular seminoma (pure) stage II
     Dosage: UNK, CYCLICAL (4 CYCLES)
     Route: 065
  2. ETOPOSIDE [Suspect]
     Active Substance: ETOPOSIDE
     Indication: Metastases to lymph nodes
  3. CISPLATIN [Suspect]
     Active Substance: CISPLATIN
     Indication: Testicular seminoma (pure) stage II
     Dosage: UNK, CYCLICAL (4 CYCLES)
     Route: 065
  4. CISPLATIN [Suspect]
     Active Substance: CISPLATIN
     Indication: Metastases to lymph nodes
  5. IDEBENONE [Concomitant]
     Active Substance: IDEBENONE
     Indication: Hereditary optic atrophy
     Dosage: 500 MILLIGRAM, QD (DURING TREATMENT CYCLES)
     Route: 065
  6. VITAMIN C [Concomitant]
     Active Substance: ASCORBIC ACID
     Indication: Vitamin supplementation
     Dosage: UNK (DURING THE LAST WEEK OF EACH CHEMOTHERAPY CYCLE)
     Route: 042
  7. VITAMIN C [Concomitant]
     Active Substance: ASCORBIC ACID
     Indication: Hereditary optic atrophy
  8. COENZYME Q10 [Concomitant]
     Active Substance: DIETARY SUPPLEMENT\UBIDECARENONE
     Indication: Hereditary optic atrophy
     Dosage: 150 MILLIGRAM, BID (DURING TREATMENT CYCLES)
     Route: 065

REACTIONS (1)
  - Peripheral sensory neuropathy [Unknown]
